FAERS Safety Report 23777042 (Version 1)
Quarter: 2024Q2

REPORT INFORMATION
  Report Type: Spontaneous
  Country: CA (occurrence: CA)
  Receive Date: 20240424
  Receipt Date: 20240424
  Transmission Date: 20240716
  Serious: Yes (Other)
  Sender: FDA-Public Use
  Company Number: CA-CELLTRION INC.-2021CA019483

PATIENT

DRUGS (8)
  1. TRUXIMA [Suspect]
     Active Substance: RITUXIMAB-ABBS
     Indication: Rheumatoid arthritis
     Dosage: 1000 MG, DAY 1 AND 15
     Route: 042
     Dates: start: 20200630
  2. GABAPENTIN [Concomitant]
     Active Substance: GABAPENTIN
  3. LYRICA [Concomitant]
     Active Substance: PREGABALIN
  4. BACLOFEN [Concomitant]
     Active Substance: BACLOFEN
  5. BISOPROLOL [Concomitant]
     Active Substance: BISOPROLOL\BISOPROLOL FUMARATE
  6. CRESTOR [Concomitant]
     Active Substance: ROSUVASTATIN CALCIUM
  7. AMITRIPTYLINE [Concomitant]
     Active Substance: AMITRIPTYLINE
  8. PREDNISONE [Concomitant]
     Active Substance: PREDNISONE

REACTIONS (5)
  - Hip surgery [Unknown]
  - Incision site complication [Not Recovered/Not Resolved]
  - Incision site haemorrhage [Unknown]
  - Postoperative wound infection [Recovered/Resolved]
  - Off label use [Unknown]
